FAERS Safety Report 8298677-6 (Version None)
Quarter: 2012Q2

REPORT INFORMATION
  Report Type: 
  Country: None (occurrence: None)
  Receive Date: 20120417
  Receipt Date: 20120404
  Transmission Date: 20120825
  Serious: Yes (Hospitalization)
  Sender: FDA-Public Use
  Company Number: DSJ-2012-06530

PATIENT
  Age: 82 Year
  Sex: Female

DRUGS (5)
  1. DILTIAZEM [Suspect]
     Indication: PRODUCT USED FOR UNKNOWN INDICATION
     Dosage: 100 MG,PER ORAL
     Route: 048
     Dates: end: 20111001
  2. AMLODIPINE BESYLATE AND OLMESARTAN MEDOXOMIL [Suspect]
     Indication: HYPERTENSION
     Dosage: 20/5 MG (1 IN 1 D),PER ORAL
     Route: 048
     Dates: start: 20111001
  3. LEVOTHYROXINE SODIUM [Concomitant]
  4. SPIRONOLACTONE [Suspect]
     Indication: PRODUCT USED FOR UNKNOWN INDICATION
     Dosage: PER ORAL
     Route: 048
     Dates: end: 20111001
  5. PANTOPRAZOLE (PANTOPRAZOLE) (PANTOPRAZOLE) [Concomitant]

REACTIONS (5)
  - KNEE ARTHROPLASTY [None]
  - PROCEDURAL HAEMORRHAGE [None]
  - OEDEMA PERIPHERAL [None]
  - FLUID IMBALANCE [None]
  - HYPOTENSION [None]
